FAERS Safety Report 7170734-7 (Version None)
Quarter: 2010Q4

REPORT INFORMATION
  Report Type: 
  Country: None (occurrence: None)
  Receive Date: 20101206
  Receipt Date: 20101122
  Transmission Date: 20110411
  Serious: No
  Sender: FDA-Public Use
  Company Number: 2010-01007

PATIENT
  Age: 21 Year
  Sex: Female
  Weight: 65.7716 kg

DRUGS (1)
  1. ZICAM COLD REMEDY ZAVORS [Suspect]
     Indication: NASOPHARYNGITIS
     Dosage: QID X 3 DAYS
     Dates: start: 20101019, end: 20101021

REACTIONS (2)
  - NO THERAPEUTIC RESPONSE [None]
  - RASH [None]
